FAERS Safety Report 6828498-X (Version None)
Quarter: 2010Q3

REPORT INFORMATION
  Report Type: 
  Country: None (occurrence: None)
  Receive Date: 20100709
  Receipt Date: 20070209
  Transmission Date: 20110219
  Serious: No
  Sender: FDA-Public Use
  Company Number: US-PFIZER INC-2007011841

PATIENT
  Sex: Female
  Weight: 56.7 kg

DRUGS (3)
  1. CHANTIX [Suspect]
     Indication: SMOKING CESSATION THERAPY
     Dates: start: 20070101, end: 20070101
  2. WELLBUTRIN [Concomitant]
  3. NICOTINE [Concomitant]

REACTIONS (4)
  - CEREBROVASCULAR DISORDER [None]
  - COGNITIVE DISORDER [None]
  - FEELING ABNORMAL [None]
  - TOBACCO USER [None]
